FAERS Safety Report 21396251 (Version 1)
Quarter: 2022Q3

REPORT INFORMATION
  Report Type: Spontaneous
  Country: CN (occurrence: CN)
  Receive Date: 20220930
  Receipt Date: 20220930
  Transmission Date: 20221026
  Serious: Yes (Other)
  Sender: FDA-Public Use
  Company Number: CN-AMGEN-CHNSP2022164786

PATIENT

DRUGS (7)
  1. XGEVA [Suspect]
     Active Substance: DENOSUMAB
     Indication: Non-small cell lung cancer
     Dosage: 120 MILLIGRAM, QMO
     Route: 058
  2. XGEVA [Suspect]
     Active Substance: DENOSUMAB
     Indication: Prophylaxis
  3. PEMBROLIZUMAB [Concomitant]
     Active Substance: PEMBROLIZUMAB
     Indication: Non-small cell lung cancer
     Dosage: UNK
  4. NIVOLUMAB [Concomitant]
     Active Substance: NIVOLUMAB
     Indication: Non-small cell lung cancer
     Dosage: UNK
  5. ATEZOLIZUMAB [Concomitant]
     Active Substance: ATEZOLIZUMAB
     Indication: Non-small cell lung cancer
     Dosage: UNK
  6. SINTILIMAB [Concomitant]
     Active Substance: SINTILIMAB
     Indication: Non-small cell lung cancer
     Dosage: UNK
  7. CAMRELIZUMAB [Concomitant]
     Active Substance: CAMRELIZUMAB
     Indication: Non-small cell lung cancer
     Dosage: UNK

REACTIONS (12)
  - Non-small cell lung cancer [Unknown]
  - Renal failure [Unknown]
  - Pathological fracture [Unknown]
  - Radiotherapy to bone [Unknown]
  - Hypoaesthesia [Unknown]
  - Pyrexia [Unknown]
  - Myalgia [Unknown]
  - Fatigue [Unknown]
  - Arthralgia [Unknown]
  - Bone pain [Unknown]
  - Therapy partial responder [Unknown]
  - Hypocalcaemia [Unknown]
